FAERS Safety Report 20977642 (Version 1)
Quarter: 2022Q2

REPORT INFORMATION
  Report Type: Spontaneous
  Country: US (occurrence: US)
  Receive Date: 20220618
  Receipt Date: 20220618
  Transmission Date: 20220721
  Serious: Yes (Other)
  Sender: FDA-Public Use
  Company Number: US-BRISTOL-MYERS SQUIBB COMPANY-2022-053851

PATIENT
  Age: 84 Year
  Sex: Male
  Weight: 76.65 kg

DRUGS (1)
  1. REVLIMID [Suspect]
     Active Substance: LENALIDOMIDE
     Indication: Mantle cell lymphoma
     Dosage: 3W, 1W OFF
     Route: 048
     Dates: start: 20211101

REACTIONS (3)
  - Malignant neoplasm progression [Unknown]
  - Night sweats [Unknown]
  - Condition aggravated [Unknown]
